FAERS Safety Report 18158212 (Version 1)
Quarter: 2020Q3

REPORT INFORMATION
  Report Type: Spontaneous
  Country: DE (occurrence: DE)
  Receive Date: 20200817
  Receipt Date: 20200817
  Transmission Date: 20201103
  Serious: Yes (Death, Life-Threatening, Other)
  Sender: FDA-Public Use
  Company Number: DE-ALLERGAN-2030289US

PATIENT
  Sex: Female

DRUGS (4)
  1. IPILIMUMAB [Suspect]
     Active Substance: IPILIMUMAB
     Indication: MALIGNANT MELANOMA
     Dosage: 285 MILLIGRAM, Q3WK
     Route: 065
     Dates: start: 20181218, end: 20190117
  2. NIVOLUMAB [Suspect]
     Active Substance: NIVOLUMAB
     Indication: MALIGNANT MELANOMA
     Dosage: 95 MILLIGRAM, Q3WK
     Route: 042
     Dates: start: 20181218, end: 20190117
  3. DEX UNK [Suspect]
     Active Substance: UNSPECIFIED INGREDIENT
     Indication: PRODUCT USED FOR UNKNOWN INDICATION
     Route: 065
  4. LEVETIRACETAM. [Concomitant]
     Active Substance: LEVETIRACETAM
     Indication: PRODUCT USED FOR UNKNOWN INDICATION
     Route: 065

REACTIONS (8)
  - Malignant neoplasm progression [Fatal]
  - Insomnia [Unknown]
  - Agitation [Not Recovered/Not Resolved]
  - Abdominal pain upper [Unknown]
  - Alopecia [Unknown]
  - Arthralgia [Unknown]
  - Seizure [Recovered/Resolved]
  - Dysarthria [Recovered/Resolved]

NARRATIVE: CASE EVENT DATE: 20190107
